FAERS Safety Report 9672353 (Version 2)
Quarter: 2013Q4

REPORT INFORMATION
  Report Type: Spontaneous
  Country: US (occurrence: US)
  Receive Date: 20131106
  Receipt Date: 20131202
  Transmission Date: 20140711
  Serious: Yes (Disabling, Other)
  Sender: FDA-Public Use
  Company Number: US-PFIZER INC-2013312962

PATIENT
  Age: 44 Year
  Sex: Female
  Weight: 67.57 kg

DRUGS (3)
  1. LEVOXYL [Suspect]
     Indication: HYPOTHYROIDISM
     Dosage: 275 UG, 1X/DAY
  2. GABAPENTIN [Concomitant]
     Dosage: 200 MG, 2X/DAY
  3. LEXAPRO [Concomitant]
     Indication: ANXIETY
     Dosage: 10 MG, 1X/DAY

REACTIONS (3)
  - Renal failure [Unknown]
  - Type 1 diabetes mellitus [Unknown]
  - Blood glucose decreased [Unknown]
